FAERS Safety Report 19103746 (Version 1)
Quarter: 2021Q2

REPORT INFORMATION
  Report Type: Spontaneous
  Country: FR (occurrence: FR)
  Receive Date: 20210407
  Receipt Date: 20210407
  Transmission Date: 20210717
  Serious: Yes (Death, Hospitalization)
  Sender: FDA-Public Use
  Company Number: FR-ABBVIE-21K-056-3846286-00

PATIENT
  Age: 14 Year
  Sex: Female
  Weight: 82 kg

DRUGS (20)
  1. MEROPENEM ANHYDRE [Suspect]
     Active Substance: MEROPENEM
     Indication: SEPSIS
     Dosage: VOIR COMMENTAIRE
     Route: 042
     Dates: start: 20200919, end: 20200923
  2. SUFENTANIL [Suspect]
     Active Substance: SUFENTANIL
     Indication: GENERAL ANAESTHESIA
     Dosage: POSOLOGIE NON CONNUE
     Route: 042
     Dates: start: 20200924, end: 20200924
  3. ATROPINE. [Concomitant]
     Active Substance: ATROPINE
     Indication: PRODUCT USED FOR UNKNOWN INDICATION
  4. EPHEDRINE. [Concomitant]
     Active Substance: EPHEDRINE
     Indication: PRODUCT USED FOR UNKNOWN INDICATION
  5. LOVENOX [Concomitant]
     Active Substance: ENOXAPARIN SODIUM
     Indication: PRODUCT USED FOR UNKNOWN INDICATION
     Route: 058
  6. HYDROCORTISONE. [Concomitant]
     Active Substance: HYDROCORTISONE
     Indication: PRODUCT USED FOR UNKNOWN INDICATION
  7. LINEZOLIDE [Suspect]
     Active Substance: LINEZOLID
     Indication: SEPSIS
     Dosage: VOIR COMMENTAIRE
     Route: 042
     Dates: start: 20200919, end: 20200923
  8. ZOPHREN [Suspect]
     Active Substance: ONDANSETRON
     Indication: VOMITING
     Route: 042
     Dates: start: 20200924, end: 20200924
  9. MIDAZOLAM. [Suspect]
     Active Substance: MIDAZOLAM
     Indication: GENERALISED TONIC-CLONIC SEIZURE
     Route: 042
     Dates: start: 20200924, end: 20200924
  10. EMLA [Concomitant]
     Active Substance: LIDOCAINE\PRILOCAINE
     Indication: PRODUCT USED FOR UNKNOWN INDICATION
     Route: 046
  11. ORBENINE [Suspect]
     Active Substance: CLOXACILLIN SODIUM
     Indication: SEPSIS
     Dosage: VOIR COMMENTAIRE
     Route: 042
  12. PROPOFOL. [Suspect]
     Active Substance: PROPOFOL
     Indication: GENERAL ANAESTHESIA
     Dosage: POSOLOGIE NON CONNUE
     Route: 042
     Dates: start: 20200924, end: 20200924
  13. CLAFORAN [Concomitant]
     Active Substance: CEFOTAXIME SODIUM
     Indication: PRODUCT USED FOR UNKNOWN INDICATION
  14. NUBAIN [Concomitant]
     Active Substance: NALBUPHINE HYDROCHLORIDE
     Indication: PRODUCT USED FOR UNKNOWN INDICATION
  15. VANCOMYCINE [Concomitant]
     Active Substance: VANCOMYCIN
     Indication: PRODUCT USED FOR UNKNOWN INDICATION
  16. PREDNISOLONE. [Concomitant]
     Active Substance: PREDNISOLONE
     Indication: PRODUCT USED FOR UNKNOWN INDICATION
  17. CELOCURINE [Concomitant]
     Active Substance: SUCCINYLCHOLINE
     Indication: PRODUCT USED FOR UNKNOWN INDICATION
  18. FOSFOMYCINE [Concomitant]
     Active Substance: FOSFOMYCIN
     Indication: PRODUCT USED FOR UNKNOWN INDICATION
  19. SEVOFLURANE. [Suspect]
     Active Substance: SEVOFLURANE
     Indication: GENERAL ANAESTHESIA
     Dosage: POSOLOGIE NON CONNUE
     Route: 055
     Dates: start: 20200924, end: 20200924
  20. FLUDROCORTISONE [Concomitant]
     Active Substance: FLUDROCORTISONE
     Indication: PRODUCT USED FOR UNKNOWN INDICATION

REACTIONS (2)
  - Generalised tonic-clonic seizure [Fatal]
  - Cardio-respiratory arrest [Fatal]

NARRATIVE: CASE EVENT DATE: 20200924
